FAERS Safety Report 16455563 (Version 1)
Quarter: 2019Q2

REPORT INFORMATION
  Report Type: Other
  Country: US (occurrence: US)
  Receive Date: 20190619
  Receipt Date: 20190619
  Transmission Date: 20190711
  Serious: Yes (Life-Threatening)
  Sender: FDA-Public Use
  Company Number: US-STANDARD HOMEOPATHIC COMPANY-2069395

PATIENT
  Sex: Male

DRUGS (1)
  1. PRID [Suspect]
     Active Substance: HOMEOPATHICS
     Indication: PAIN
     Route: 061
     Dates: start: 20190606, end: 20190606

REACTIONS (1)
  - Cellulitis [Unknown]

NARRATIVE: CASE EVENT DATE: 20190606
